FAERS Safety Report 9352057 (Version 1)
Quarter: 2013Q2

REPORT INFORMATION
  Report Type: Spontaneous
  Country: GB (occurrence: None)
  Receive Date: 20130612
  Receipt Date: 20130612
  Transmission Date: 20140414
  Serious: Yes (Other)
  Sender: FDA-Public Use
  Company Number: AYR-APL-2013-04766

PATIENT
  Age: 69 Year
  Sex: Male
  Weight: 105 kg

DRUGS (9)
  1. AMOXICILLIN [Suspect]
     Indication: PRODUCT USED FOR UNKNOWN INDICATION
     Dates: start: 20130322, end: 20130402
  2. CLARITHROMYCIN (CLARITHROMYCIN) [Concomitant]
  3. EUMOVATE (CLOBETASONE BUTYRATE) [Concomitant]
  4. HYDROCORTISONE (HYDROCORTISONE) [Concomitant]
  5. PREDNISOLONE (PREDNISOLONE) [Concomitant]
  6. SALAMOL (SALBUTAMOL) [Concomitant]
  7. SYMBICORT [Concomitant]
  8. TIOTROPIUM (TIOTROPIUM) [Concomitant]
  9. TRIMOVATE (TRIMOVATE /00456501/) [Concomitant]

REACTIONS (3)
  - Lip swelling [None]
  - Blister [None]
  - Erythema [None]
